FAERS Safety Report 6649605-8 (Version None)
Quarter: 2010Q1

REPORT INFORMATION
  Report Type: 
  Country: None (occurrence: None)
  Receive Date: 20100324
  Receipt Date: 20100309
  Transmission Date: 20100710
  Serious: Yes (Other)
  Sender: FDA-Public Use
  Company Number: AU-GENENTECH-299607

PATIENT
  Sex: Female

DRUGS (1)
  1. LUCENTIS [Suspect]
     Indication: MACULAR DEGENERATION
     Dosage: 0.5 ML, UNK
     Route: 031
     Dates: start: 20070801

REACTIONS (5)
  - ANAEMIA [None]
  - DIVERTICULITIS [None]
  - GASTRIC ULCER [None]
  - HIATUS HERNIA [None]
  - WEIGHT DECREASED [None]
